FAERS Safety Report 8623634-7 (Version None)
Quarter: 2012Q3

REPORT INFORMATION
  Report Type: 
  Country: None (occurrence: None)
  Receive Date: 20120824
  Receipt Date: 20120824
  Transmission Date: 20120928
  Serious: Yes (Other)
  Sender: FDA-Public Use
  Company Number: None

PATIENT
  Sex: Female
  Weight: 62.5964 kg

DRUGS (1)
  1. DEPAKOTE [Suspect]

REACTIONS (4)
  - WEIGHT INCREASED [None]
  - NAIL DISORDER [None]
  - HEART RATE INCREASED [None]
  - ALOPECIA [None]
